FAERS Safety Report 4590408-6 (Version None)
Quarter: 2005Q1

REPORT INFORMATION
  Report Type: 
  Country: None (occurrence: None)
  Receive Date: 20050224
  Receipt Date: 20050216
  Transmission Date: 20050727
  Serious: Yes (Hospitalization, Other)
  Sender: FDA-Public Use
  Company Number: US-JNJFOC-20041101099

PATIENT
  Sex: Female

DRUGS (5)
  1. RISPERDAL [Suspect]
     Route: 049
  2. RISPERDAL [Suspect]
     Indication: DRUG USE FOR UNKNOWN INDICATION
     Route: 049
  3. BENADRYL [Concomitant]
     Route: 049
     Dates: start: 20040101
  4. LORAZEPAM [Concomitant]
     Route: 049
  5. DIOVAN [Concomitant]
     Indication: HYPERTENSION
     Route: 049

REACTIONS (3)
  - ABORTION SPONTANEOUS [None]
  - DIABETES MELLITUS NON-INSULIN-DEPENDENT [None]
  - DRUG EXPOSURE DURING PREGNANCY [None]
